FAERS Safety Report 5927966-2 (Version None)
Quarter: 2008Q4

REPORT INFORMATION
  Report Type: 
  Country: None (occurrence: None)
  Receive Date: 20081022
  Receipt Date: 20081022
  Transmission Date: 20090506
  Serious: Yes (Hospitalization)
  Sender: FDA-Public Use
  Company Number: None

PATIENT

DRUGS (2)
  1. DAPSONE [Suspect]
     Indication: DEEP VEIN THROMBOSIS
     Dosage: 100 MG OTHER PO
     Route: 048
     Dates: start: 20080926, end: 20081021
  2. WARFARIN SODIUM [Suspect]
     Dosage: 2.5 MG EVERY DAY PO
     Route: 048
     Dates: start: 20080912, end: 20081006

REACTIONS (2)
  - DRUG INTERACTION [None]
  - INTERNATIONAL NORMALISED RATIO ABNORMAL [None]
